FAERS Safety Report 17540381 (Version 1)
Quarter: 2020Q1

REPORT INFORMATION
  Report Type: Spontaneous
  Country: US (occurrence: US)
  Receive Date: 20200313
  Receipt Date: 20200313
  Transmission Date: 20200409
  Serious: No
  Sender: FDA-Public Use
  Company Number: US-TEVA-2020-US-1196430

PATIENT
  Sex: Female
  Weight: 62.14 kg

DRUGS (1)
  1. VENLAFAXINE [Suspect]
     Active Substance: VENLAFAXINE HYDROCHLORIDE
     Indication: DEPRESSION
     Dosage: 225 MG BY MOUTH EACH DAY; 150 MG CAPSULE AND 75 MG
     Route: 065

REACTIONS (1)
  - Drug ineffective [Unknown]
